FAERS Safety Report 13794835 (Version 2)
Quarter: 2018Q1

REPORT INFORMATION
  Report Type: Spontaneous
  Country: US (occurrence: US)
  Receive Date: 20170726
  Receipt Date: 20180215
  Transmission Date: 20180508
  Serious: Yes (Other)
  Sender: FDA-Public Use
  Company Number: US-ACCORD-055996

PATIENT
  Age: 22 Year
  Sex: Male

DRUGS (4)
  1. FLUOCINONIDE. [Concomitant]
     Active Substance: FLUOCINONIDE
     Indication: ERYTHEMA ANNULARE
  2. METHOTREXATE. [Suspect]
     Active Substance: METHOTREXATE
     Indication: ERYTHEMA ANNULARE
  3. PREDNISONE. [Concomitant]
     Active Substance: PREDNISONE
     Indication: ERYTHEMA ANNULARE
     Dosage: ON TAPERED DOSE
     Route: 048
  4. MYCOPHENOLIC ACID. [Suspect]
     Active Substance: MYCOPHENOLIC ACID
     Indication: ERYTHEMA ANNULARE

REACTIONS (8)
  - Autoimmune hepatitis [Unknown]
  - Joint stiffness [Unknown]
  - Leukocytosis [Recovered/Resolved]
  - Joint swelling [Unknown]
  - Eosinophilia [Recovering/Resolving]
  - Condition aggravated [Recovering/Resolving]
  - Blister [Unknown]
  - Off label use [Unknown]
